FAERS Safety Report 20621809 (Version 3)
Quarter: 2022Q2

REPORT INFORMATION
  Report Type: Spontaneous
  Country: IT (occurrence: IT)
  Receive Date: 20220322
  Receipt Date: 20220519
  Transmission Date: 20220721
  Serious: Yes (Other)
  Sender: FDA-Public Use
  Company Number: IT-NOVARTISPH-NVSC2022IT057373

PATIENT
  Age: 82 Year
  Sex: Female

DRUGS (3)
  1. BEOVU [Suspect]
     Active Substance: BROLUCIZUMAB-DBLL
     Indication: Neovascular age-related macular degeneration
     Dosage: 120 MG, QMO (FORMULATION- VIAL)
     Route: 047
     Dates: start: 20220126
  2. BEOVU [Suspect]
     Active Substance: BROLUCIZUMAB-DBLL
     Dosage: UNK
     Route: 031
     Dates: start: 20220301
  3. PRADAXA [Concomitant]
     Active Substance: DABIGATRAN ETEXILATE MESYLATE
     Indication: Atrial fibrillation
     Dosage: UNK
     Route: 065

REACTIONS (8)
  - Retinal vasculitis [Not Recovered/Not Resolved]
  - Papilloedema [Recovering/Resolving]
  - Retinal artery occlusion [Recovered/Resolved with Sequelae]
  - Blindness [Not Recovered/Not Resolved]
  - Vitritis [Recovering/Resolving]
  - Retinal ischaemia [Not Recovered/Not Resolved]
  - Optic nerve disorder [Recovering/Resolving]
  - Eye pain [Unknown]

NARRATIVE: CASE EVENT DATE: 20220307
